FAERS Safety Report 24382287 (Version 1)
Quarter: 2024Q4

REPORT INFORMATION
  Report Type: Report from Study
  Country: US (occurrence: US)
  Receive Date: 20241001
  Receipt Date: 20241001
  Transmission Date: 20250115
  Serious: Yes (Hospitalization)
  Sender: ACCORD
  Company Number: US-Accord-448279

PATIENT
  Sex: Female
  Weight: 91.7 kg

DRUGS (1)
  1. CLOZAPINE [Suspect]
     Active Substance: CLOZAPINE
     Indication: Schizoaffective disorder
     Dosage: 50MG, ORAL, DAILY IN THE MORNING AND 300MG, ORAL, EVERY NIGHT AT BEDTIME
     Route: 048

REACTIONS (3)
  - Hypoxia [Unknown]
  - Respiratory failure [Unknown]
  - Metabolic encephalopathy [Unknown]
